FAERS Safety Report 23950150 (Version 1)
Quarter: 2024Q2

REPORT INFORMATION
  Report Type: Report from Study
  Country: US (occurrence: US)
  Receive Date: 20240607
  Receipt Date: 20240607
  Transmission Date: 20240716
  Serious: Yes (Other)
  Sender: FDA-Public Use
  Company Number: US-AGIOS-2405US03767

PATIENT

DRUGS (1)
  1. MITAPIVAT [Suspect]
     Active Substance: MITAPIVAT
     Indication: Pyruvate kinase deficiency anaemia
     Route: 065

REACTIONS (7)
  - Pulmonary hypertension [Unknown]
  - Deep vein thrombosis [Unknown]
  - Blood iron increased [Unknown]
  - Fatigue [Unknown]
  - Pallor [Unknown]
  - Jaundice [Unknown]
  - Arthralgia [Unknown]
